FAERS Safety Report 14251902 (Version 2)
Quarter: 2017Q4

REPORT INFORMATION
  Report Type: Spontaneous
  Country: US (occurrence: US)
  Receive Date: 20171205
  Receipt Date: 20171223
  Transmission Date: 20180321
  Serious: No
  Sender: FDA-Public Use
  Company Number: US-VIIV HEALTHCARE LIMITED-US2017183791

PATIENT
  Age: 53 Year
  Sex: Male
  Weight: 71.5 kg

DRUGS (4)
  1. TRIUMEQ [Suspect]
     Active Substance: ABACAVIR SULFATE\DOLUTEGRAVIR SODIUM\LAMIVUDINE
     Indication: HIV INFECTION
     Dosage: 1 DF, QD
     Route: 048
     Dates: start: 20171127
  2. EPZICOM [Concomitant]
     Active Substance: ABACAVIR SULFATE\LAMIVUDINE
  3. TIVICAY [Concomitant]
     Active Substance: DOLUTEGRAVIR SODIUM
  4. BUPROPION. [Concomitant]
     Active Substance: BUPROPION

REACTIONS (2)
  - Cold sweat [Not Recovered/Not Resolved]
  - Nausea [Not Recovered/Not Resolved]

NARRATIVE: CASE EVENT DATE: 20171128
